FAERS Safety Report 13675965 (Version 1)
Quarter: 2017Q2

REPORT INFORMATION
  Report Type: Spontaneous
  Country: CA (occurrence: US)
  Receive Date: 20170620
  Receipt Date: 20170620
  Transmission Date: 20170830
  Serious: Yes (Disabling)
  Sender: FDA-Public Use
  Company Number: None

PATIENT
  Age: 10 Year
  Sex: Female
  Weight: 36 kg

DRUGS (2)
  1. SUNLIFE KIDS PROBIOTIC [Concomitant]
  2. RESTORALAX [Suspect]
     Active Substance: POLYETHYLENE GLYCOL 3350
     Indication: CONSTIPATION
     Dosage: QUANTITY:1 TABLESPOON(S);?
     Route: 048
     Dates: start: 20170222, end: 20170616

REACTIONS (3)
  - Nausea [None]
  - Malaise [None]
  - Headache [None]

NARRATIVE: CASE EVENT DATE: 20170601
